FAERS Safety Report 7581313-1 (Version None)
Quarter: 2011Q2

REPORT INFORMATION
  Report Type: 
  Country: None (occurrence: None)
  Receive Date: 20110629
  Receipt Date: 20110529
  Transmission Date: 20111010
  Serious: Yes (Death)
  Sender: FDA-Public Use
  Company Number: US-GLAXOSMITHKLINE-A0366043A

PATIENT
  Age: 40 Year
  Sex: Female

DRUGS (5)
  1. BIOTENE [Suspect]
     Dosage: 250MG TWICE PER DAY
     Route: 048
     Dates: start: 20000101
  2. FLONASE [Suspect]
     Indication: MULTIPLE ALLERGIES
     Dosage: 2PUFF PER DAY
     Route: 045
  3. TEMOVATE [Suspect]
     Indication: PANIC ATTACK
     Route: 061
     Dates: start: 20110101
  4. ZANTAC [Suspect]
     Indication: GASTRIC ULCER
     Dosage: 2MG TWICE PER DAY
     Route: 048
     Dates: start: 20110501, end: 20110519
  5. IMITREX [Suspect]
     Indication: MIGRAINE
     Dosage: 1TAB CUMULATIVE DOSE

REACTIONS (3)
  - GINGIVAL BLEEDING [None]
  - DEATH [None]
  - GASTRIC HAEMORRHAGE [None]
